FAERS Safety Report 6749524-2 (Version None)
Quarter: 2010Q2

REPORT INFORMATION
  Report Type: 
  Country: None (occurrence: None)
  Receive Date: 20100527
  Receipt Date: 20100519
  Transmission Date: 20101027
  Serious: Yes (Death, Hospitalization)
  Sender: FDA-Public Use
  Company Number: 2010BN000032

PATIENT
  Age: 6 Year
  Sex: Male

DRUGS (7)
  1. MELPHALAN HYDROCHLORIDE [Suspect]
     Indication: BONE MARROW CONDITIONING REGIMEN
     Dosage: 70 MG/M2; QD; IV
     Route: 042
  2. IFOSFAMIDE [Suspect]
     Indication: MEDULLOBLASTOMA
  3. CISPLATIN [Suspect]
     Indication: MEDULLOBLASTOMA
  4. ETOPOSIDE [Suspect]
     Indication: MEDULLOBLASTOMA
  5. BUSULFAN (BUSULFAN) [Suspect]
     Indication: BONE MARROW CONDITIONING REGIMEN
     Dosage: 1.1 MG/KG; Q6H; IV
     Route: 042
  6. CARBOPLATIN [Suspect]
     Indication: BONE MARROW CONDITIONING REGIMEN
     Dosage: 1200 MG/M2;
  7. THIOTEPA [Suspect]
     Indication: BONE MARROW CONDITIONING REGIMEN
     Dosage: 750 MG/M2;

REACTIONS (4)
  - CHEMOTHERAPEUTIC DRUG LEVEL INCREASED [None]
  - PNEUMONIA [None]
  - RESPIRATORY FAILURE [None]
  - STEM CELL TRANSPLANT [None]
